FAERS Safety Report 9197219 (Version 1)
Quarter: 2013Q1

REPORT INFORMATION
  Report Type: Spontaneous
  Country: JP (occurrence: JP)
  Receive Date: 20130328
  Receipt Date: 20130328
  Transmission Date: 20140127
  Serious: Yes (Hospitalization)
  Sender: FDA-Public Use
  Company Number: JP-PFIZER INC-2013089208

PATIENT
  Age: 46 Year
  Sex: Female

DRUGS (5)
  1. LYRICA [Suspect]
     Indication: NEURALGIA
     Dosage: 25 MG, DAILY
     Route: 048
  2. LYRICA [Suspect]
     Dosage: 50 MG, DAILY
     Route: 048
  3. LYRICA [Suspect]
     Dosage: 75 MG, DAILY
     Route: 048
  4. TOLEDOMIN [Concomitant]
     Dosage: 50 MG, DAILY
  5. WYPAX [Concomitant]
     Dosage: UNK

REACTIONS (2)
  - Facial pain [Unknown]
  - Somnolence [Not Recovered/Not Resolved]
